FAERS Safety Report 25651184 (Version 1)
Quarter: 2025Q3

REPORT INFORMATION
  Report Type: Spontaneous
  Country: TW (occurrence: TW)
  Receive Date: 20250806
  Receipt Date: 20250806
  Transmission Date: 20251021
  Serious: Yes (Other)
  Sender: PFIZER
  Company Number: TW-PFIZER INC-PV202500094687

PATIENT
  Age: 78 Year
  Sex: Male

DRUGS (1)
  1. CIBINQO [Suspect]
     Active Substance: ABROCITINIB
     Indication: Dermatitis atopic
     Dosage: 200 MG, 1X/DAY (INTERMITTENTLY)
     Route: 048
     Dates: start: 20250619, end: 20250805

REACTIONS (3)
  - Dizziness [Unknown]
  - Diarrhoea [Unknown]
  - Off label use [Unknown]
